FAERS Safety Report 21962361 (Version 1)
Quarter: 2023Q1

REPORT INFORMATION
  Report Type: Report from Study
  Country: US (occurrence: US)
  Receive Date: 20230207
  Receipt Date: 20230207
  Transmission Date: 20230418
  Serious: No
  Sender: FDA-Public Use
  Company Number: US-ORG100014127-2022000195

PATIENT
  Age: 59 Year
  Sex: Female

DRUGS (4)
  1. LYSODREN [Suspect]
     Active Substance: MITOTANE
     Indication: Adrenal gland cancer
     Dosage: 04 TABLETS TWO TIMES DAILY
     Route: 048
     Dates: start: 20210611, end: 202201
  2. LYSODREN [Suspect]
     Active Substance: MITOTANE
     Indication: Adrenal gland cancer
     Dosage: 06 TABLETS TWO TIMES DAILY
     Route: 048
     Dates: start: 202201
  3. LYSODREN [Suspect]
     Active Substance: MITOTANE
     Indication: Adrenal gland cancer
     Dosage: 06 TABLETS IN THE MORNING, 05 TABLETS AT MID-DAY AND 05 TABLETS IN THE EVENING
     Route: 048
  4. IMODIUM A-D LIQ 1MG/7.5 [Concomitant]
     Indication: Product used for unknown indication

REACTIONS (7)
  - Gastrointestinal pain [Not Recovered/Not Resolved]
  - Abdominal discomfort [Not Recovered/Not Resolved]
  - Diarrhoea [Not Recovered/Not Resolved]
  - Dizziness [Not Recovered/Not Resolved]
  - Fatigue [Not Recovered/Not Resolved]
  - Headache [Not Recovered/Not Resolved]
  - Nausea [Not Recovered/Not Resolved]

NARRATIVE: CASE EVENT DATE: 20220101
